FAERS Safety Report 20612831 (Version 1)
Quarter: 2022Q1

REPORT INFORMATION
  Report Type: Spontaneous
  Country: US (occurrence: US)
  Receive Date: 20220318
  Receipt Date: 20220318
  Transmission Date: 20220424
  Serious: Yes (Hospitalization)
  Sender: FDA-Public Use
  Company Number: US-MIRM-000340

PATIENT
  Age: 4 Year
  Sex: Female
  Weight: 14 kg

DRUGS (11)
  1. LIVMARLI [Suspect]
     Active Substance: MARALIXIBAT CHLORIDE
     Indication: Cholestasis
     Route: 048
     Dates: start: 20220119
  2. 2382270 (GLOBALC3Sep19): Multivitamin [Concomitant]
     Route: 048
  3. 1324519 (GLOBALC3Sep19): Acetaminophen [Concomitant]
     Dosage: TIME INTERVAL: AS NECESSARY; 160 ML/5 ML 4 ML PO Q4H PRN
     Route: 048
  4. 1262333 (GLOBALC3Sep19): Aspirin [Concomitant]
     Route: 048
  5. 1327788 (GLOBALC3Sep19): Phytonadione [Concomitant]
     Route: 048
  6. 3118011 (GLOBALC3Sep19): Naltrexone [Concomitant]
     Route: 048
  7. 2245337 (GLOBALC3Sep19): Cyproheptadine [Concomitant]
     Dosage: TIME INTERVAL: 0.33333333 DAYS
     Route: 048
  8. 1327825 (GLOBALC3Sep19): Polyethylene glycol [Concomitant]
     Route: 048
  9. 1328139 (GLOBALC3Sep19): Rifampin [Concomitant]
     Dosage: 25 MG/ML?DOSE: 2 ML PO BID
     Route: 048
  10. 1571069 (GLOBALC3Sep19): Simethicone [Concomitant]
     Indication: Constipation
     Dosage: TIME INTERVAL: AS NECESSARY; 40 MG, 0.6 ML, QID PRN
     Route: 048
  11. 1328777 (GLOBALC3Sep19): Ursodiol [Concomitant]
     Dosage: 60 MG/ML?2 ML PO BID
     Route: 048

REACTIONS (1)
  - Malnutrition [Unknown]

NARRATIVE: CASE EVENT DATE: 20220301
